FAERS Safety Report 9277352 (Version 1)
Quarter: 2013Q2

REPORT INFORMATION
  Report Type: Spontaneous
  Country: US (occurrence: None)
  Receive Date: 20130503
  Receipt Date: 20130503
  Transmission Date: 20140414
  Serious: No
  Sender: FDA-Public Use
  Company Number: None

PATIENT
  Age: 59 Year
  Sex: 0
  Weight: 58.97 kg

DRUGS (2)
  1. PULMICORT [Suspect]
     Indication: BRONCHOSPASM
     Dosage: USE ONE VIAL VIA  TWICE DAILY
     Dates: start: 20130207, end: 20130315
  2. BROVANA [Suspect]
     Dosage: 1 USE ONE VIAL VIA  TWICE DAILY
     Dates: start: 20130207

REACTIONS (3)
  - Gingival pain [None]
  - Gingival erosion [None]
  - Sensitivity of teeth [None]
